FAERS Safety Report 24992898 (Version 1)
Quarter: 2025Q1

REPORT INFORMATION
  Report Type: Report from Study
  Country: PK (occurrence: PK)
  Receive Date: 20250221
  Receipt Date: 20250221
  Transmission Date: 20250409
  Serious: Yes (Death)
  Sender: ROCHE
  Company Number: PK-ROCHE-10000213714

PATIENT
  Age: 54 Year
  Sex: Female

DRUGS (4)
  1. HERCEPTIN [Suspect]
     Active Substance: TRASTUZUMAB
     Indication: Breast cancer metastatic
     Route: 058
     Dates: start: 20240817, end: 20250120
  2. HERCEPTIN [Suspect]
     Active Substance: TRASTUZUMAB
     Route: 058
  3. HERCEPTIN [Suspect]
     Active Substance: TRASTUZUMAB
     Route: 058
  4. HERCEPTIN [Suspect]
     Active Substance: TRASTUZUMAB
     Route: 058

REACTIONS (1)
  - Death [Fatal]

NARRATIVE: CASE EVENT DATE: 20250124
